FAERS Safety Report 16540536 (Version 1)
Quarter: 2019Q3

REPORT INFORMATION
  Report Type: Spontaneous
  Country: DE (occurrence: DE)
  Receive Date: 20190708
  Receipt Date: 20190708
  Transmission Date: 20191004
  Serious: Yes (Hospitalization)
  Sender: FDA-Public Use
  Company Number: DE-ACCORD-137551

PATIENT
  Age: 63 Year
  Sex: Male

DRUGS (9)
  1. FERMED [Concomitant]
     Dosage: STRENGTH: 100 MG/5 ML, 100 MG/5 ML, 1/MONTH
  2. PREGABALIN. [Concomitant]
     Active Substance: PREGABALIN
     Dosage: 75 MG, 1-0-1-0
  3. DEKRISTOL [Concomitant]
     Active Substance: CHOLECALCIFEROL
     Dosage: STRENGTH: 20000 I.E., 20000 IE, 2/MONTH
  4. ACETYLSALICYLIC ACID [Suspect]
     Active Substance: ASPIRIN
     Indication: PRODUCT USED FOR UNKNOWN INDICATION
     Dosage: 100 MG, 1-0-0-0, STRENGTH: 100
  5. CARVEDILOL/CARVEDILOL HYDROCHLODRIDE [Concomitant]
     Dosage: 6.25 MG, 1-0-1-0
  6. CALCET [Concomitant]
     Dosage: 500 MG, 2-2-3-0
  7. CLOPIDOGREL [Suspect]
     Active Substance: CLOPIDOGREL BISULFATE
     Indication: PRODUCT USED FOR UNKNOWN INDICATION
     Dosage: 75 MG, 1-0-0-0
  8. LEVOTHYROXINE. [Concomitant]
     Active Substance: LEVOTHYROXINE
     Dosage: 125 MICROGRAM, 1-0-0-0
  9. PANTOPRAZOLE [Concomitant]
     Active Substance: PANTOPRAZOLE
     Dosage: 40 MG, 1-0-0-0

REACTIONS (3)
  - Haematochezia [Unknown]
  - Abdominal pain [Unknown]
  - Dizziness [Unknown]
